FAERS Safety Report 5811157-X (Version None)
Quarter: 2008Q3

REPORT INFORMATION
  Report Type: 
  Country: None (occurrence: None)
  Receive Date: 20080711
  Receipt Date: 20080314
  Transmission Date: 20090109
  Serious: No
  Sender: FDA-Public Use
  Company Number: 2008BM000059

PATIENT
  Age: 8 Year
  Sex: Male

DRUGS (1)
  1. KUVAN [Suspect]
     Indication: PHENYLKETONURIA

REACTIONS (3)
  - AGITATION [None]
  - DISORIENTATION [None]
  - DYSPNOEA [None]
